FAERS Safety Report 9362084 (Version 2)
Quarter: 2013Q2

REPORT INFORMATION
  Report Type: Spontaneous
  Country: US (occurrence: US)
  Receive Date: 20130621
  Receipt Date: 20130628
  Transmission Date: 20140414
  Serious: Yes (Death, Hospitalization, Other)
  Sender: FDA-Public Use
  Company Number: US-BAXTER-2013BAX019747

PATIENT
  Age: 85 Year
  Sex: Male

DRUGS (1)
  1. DIANEAL LOW CALCIUM [Suspect]
     Indication: PERITONEAL DIALYSIS
     Route: 033
     Dates: end: 20130610

REACTIONS (8)
  - Lung neoplasm malignant [Fatal]
  - Pneumonia [Not Recovered/Not Resolved]
  - Haematemesis [Unknown]
  - Unresponsive to stimuli [Unknown]
  - Loss of consciousness [Unknown]
  - Contraindication to medical treatment [Unknown]
  - Feeling abnormal [Unknown]
  - Pain [Unknown]
